FAERS Safety Report 7532505-9 (Version None)
Quarter: 2011Q2

REPORT INFORMATION
  Report Type: 
  Country: None (occurrence: None)
  Receive Date: 20110608
  Receipt Date: 20110525
  Transmission Date: 20111010
  Serious: Yes (Other)
  Sender: FDA-Public Use
  Company Number: PHHY2011US09506

PATIENT
  Sex: Female

DRUGS (16)
  1. ANTIDEPRESSANTS [Concomitant]
     Dosage: UNK
  2. WELLBUTRIN XL [Concomitant]
     Dosage: 150 MG, BID
  3. HEPARIN [Concomitant]
     Dosage: UNK UKN, PORTACATH MONTHLY
  4. VITAMIN B COMPLEX CAP [Concomitant]
  5. CALCIUM CARBONATE [Concomitant]
  6. CYMBALTA [Concomitant]
     Dosage: 30 MG, UNK,DAILY
  7. ZINC [Concomitant]
  8. IMMUNOGLOBULINS [Concomitant]
     Dosage: 400 MG, UNK,MONTHLY
     Route: 042
  9. LEVOTHYROXINE SODIUM [Concomitant]
     Dosage: 1 MG, UNK,DAILY
  10. BACLOFEN [Concomitant]
     Dosage: 20 MG, TID
  11. COUMADIN [Concomitant]
  12. VITAMIN D [Concomitant]
  13. GILENYA [Suspect]
     Indication: MULTIPLE SCLEROSIS
     Dosage: 0.5 MG, QD
     Route: 048
     Dates: start: 20101130, end: 20110328
  14. MAXALT [Concomitant]
     Indication: MIGRAINE
     Dosage: 10 MG, PRN
  15. MAGNESIUM SULFATE [Concomitant]
  16. COUMADIN [Concomitant]

REACTIONS (20)
  - GAIT DISTURBANCE [None]
  - BALANCE DISORDER [None]
  - ARTHRALGIA [None]
  - MEMORY IMPAIRMENT [None]
  - CYSTITIS [None]
  - BLOOD PRESSURE DECREASED [None]
  - LYMPHOCYTE COUNT DECREASED [None]
  - CONFUSIONAL STATE [None]
  - FURUNCLE [None]
  - BACK PAIN [None]
  - MOOD SWINGS [None]
  - FATIGUE [None]
  - EMOTIONAL DISORDER [None]
  - HEADACHE [None]
  - PARANOIA [None]
  - AMENORRHOEA [None]
  - MENSTRUATION IRREGULAR [None]
  - VAGINAL INFECTION [None]
  - MUSCLE SPASMS [None]
  - PAIN IN EXTREMITY [None]
